FAERS Safety Report 9334696 (Version 1)
Quarter: 2013Q2

REPORT INFORMATION
  Report Type: Spontaneous
  Country: US (occurrence: US)
  Receive Date: 20130606
  Receipt Date: 20130606
  Transmission Date: 20140414
  Serious: No
  Sender: FDA-Public Use
  Company Number: US-AMGEN-USASP2013008626

PATIENT
  Age: 70 Year
  Sex: Female

DRUGS (4)
  1. PROLIA [Suspect]
     Indication: PRODUCT USED FOR UNKNOWN INDICATION
     Dosage: UNK
     Dates: start: 201201
  2. LISINOPRIL [Concomitant]
  3. CALCIUM [Concomitant]
  4. MULTIVITAMIN                       /00097801/ [Concomitant]

REACTIONS (1)
  - Muscular weakness [Recovered/Resolved]
